FAERS Safety Report 7128998-1 (Version None)
Quarter: 2010Q4

REPORT INFORMATION
  Report Type: 
  Country: None (occurrence: None)
  Receive Date: 20101112
  Receipt Date: 20101026
  Transmission Date: 20110411
  Serious: Yes (Death)
  Sender: FDA-Public Use
  Company Number: AUR-APL-2010-02674

PATIENT
  Age: 36 Year
  Sex: Male

DRUGS (1)
  1. METFORMIN [Suspect]
     Indication: HYPERGLYCAEMIA
     Dosage: 500MG-BID/WITHDRAWN

REACTIONS (6)
  - HEPATORENAL SYNDROME [None]
  - LACTIC ACIDOSIS [None]
  - MALAISE [None]
  - MULTI-ORGAN FAILURE [None]
  - NO THERAPEUTIC RESPONSE [None]
  - PARTIAL SEIZURES [None]
